FAERS Safety Report 25704095 (Version 1)
Quarter: 2025Q3

REPORT INFORMATION
  Report Type: Spontaneous
  Country: TR (occurrence: TR)
  Receive Date: 20250820
  Receipt Date: 20250820
  Transmission Date: 20251021
  Serious: Yes (Other)
  Sender: JOHNSON AND JOHNSON
  Company Number: TR-JNJFOC-20250816654

PATIENT
  Age: 59 Year
  Sex: Male

DRUGS (1)
  1. RISPERDAL [Suspect]
     Active Substance: RISPERIDONE
     Indication: Product used for unknown indication
     Route: 065

REACTIONS (5)
  - Blindness [Unknown]
  - Hallucination [Unknown]
  - Dyskinesia [Unknown]
  - Confusional state [Unknown]
  - Dysphagia [Unknown]
